FAERS Safety Report 13023120 (Version 1)
Quarter: 2016Q4

REPORT INFORMATION
  Report Type: Spontaneous
  Country: US (occurrence: US)
  Receive Date: 20161213
  Receipt Date: 20161213
  Transmission Date: 20170207
  Serious: No
  Sender: FDA-Public Use
  Company Number: US-TEVA-662989USA

PATIENT
  Age: 16 Year
  Sex: Female
  Weight: 51.3 kg

DRUGS (3)
  1. MUCINEX [Concomitant]
     Active Substance: GUAIFENESIN
  2. AZITHROMYCIN ANHYDROUS. [Suspect]
     Active Substance: AZITHROMYCIN ANHYDROUS
     Indication: UPPER RESPIRATORY TRACT INFECTION
     Route: 065
     Dates: start: 20160517
  3. AZITHROMYCIN ANHYDROUS. [Suspect]
     Active Substance: AZITHROMYCIN ANHYDROUS
     Indication: SINUSITIS

REACTIONS (4)
  - Drug ineffective [Unknown]
  - Fatigue [Unknown]
  - Sleep paralysis [Unknown]
  - Laziness [Unknown]

NARRATIVE: CASE EVENT DATE: 20160518
